FAERS Safety Report 4470356-2 (Version None)
Quarter: 2004Q3

REPORT INFORMATION
  Report Type: 
  Country: None (occurrence: None)
  Receive Date: 20040910
  Receipt Date: 20040722
  Transmission Date: 20050211
  Serious: Yes (Other)
  Sender: FDA-Public Use
  Company Number: 2004-00255

PATIENT
  Sex: Female
  Weight: 73 kg

DRUGS (5)
  1. VELCADE [Suspect]
     Indication: MULTIPLE MYELOMA
     Dosage: 1.25 MG, INTRAVENOUS; SEE IMAGE
     Route: 042
     Dates: start: 20030805, end: 20031031
  2. VELCADE [Suspect]
     Indication: MULTIPLE MYELOMA
     Dosage: 1.25 MG, INTRAVENOUS; SEE IMAGE
     Route: 042
     Dates: start: 20040805, end: 20031031
  3. DARVOCET (PARACETAMOL, DEXTROPROPOXYPHENE NAPSILATE) [Concomitant]
  4. PREVACID [Concomitant]
  5. PHENERGAN [Concomitant]

REACTIONS (3)
  - DISEASE PROGRESSION [None]
  - NEUROPATHY PERIPHERAL [None]
  - PLATELET COUNT DECREASED [None]
